FAERS Safety Report 9238121 (Version 1)
Quarter: 2013Q1

REPORT INFORMATION
  Report Type: Spontaneous
  Country: US (occurrence: None)
  Receive Date: 20121107
  Receipt Date: 20121107
  Transmission Date: 20140127
  Serious: No
  Sender: FDA-Public Use
  Company Number: 2012HGS-003807

PATIENT
  Age: 47 Year
  Sex: Female
  Weight: 95.26 kg

DRUGS (10)
  1. BENLYSTA [Suspect]
     Indication: SYSTEMIC LUPUS ERYTHEMATOSUS
     Dosage: 1 IN 28 D
     Route: 041
     Dates: start: 20111221
  2. SYNTHROID (LEVOTHYROXINE SODIUM)  (LEVOTHYROXINE SODIUM) [Concomitant]
  3. COUMADIN (WALFARIN SODIUM) (WALFARIN SODIUM) [Concomitant]
  4. DILAUDID (HYDROMORPHONE HYDROCHLORIDE) (HYDROMORPHONE HYDROCHLORIDE) [Concomitant]
  5. NORCO (VICODIN ) (PARACETAMOL, HYDROCODONE BITARTERATE) [Concomitant]
  6. NORVASC ( AMLODIPINE BESYLATE) (AMLODIPINE BESYLATE) [Concomitant]
  7. CELLCEPT (MYCOPHENOLATE MOFETIL) (MYCOPHENOLATE MOFETIL) [Concomitant]
  8. TRAZADONE (TRAZODONE HYDROCHLORIDE) (TRAZODONE HYDROCHLORIDE) [Concomitant]
  9. VALIUM (DIAZEPAM) (DIAZEPAM) [Concomitant]
  10. PROZAC (FLUOXETINE HYDROCHLORIDE) (FLUOXETINE HYDROCHLORIDE) [Concomitant]

REACTIONS (2)
  - Fatigue [None]
  - Nausea [None]
